FAERS Safety Report 24594444 (Version 9)
Quarter: 2025Q1

REPORT INFORMATION
  Report Type: Report from Study
  Country: US (occurrence: US)
  Receive Date: 20241108
  Receipt Date: 20250213
  Transmission Date: 20250408
  Serious: Yes (Life-Threatening, Hospitalization, Disabling, Other)
  Sender: NOVARTIS
  Company Number: US-002147023-NVSC2024US207830

PATIENT
  Age: 69 Year
  Sex: Male
  Weight: 63.5 kg

DRUGS (208)
  1. LAMPRENE [Suspect]
     Active Substance: CLOFAZIMINE
     Indication: Mycobacterium abscessus infection
     Dosage: 100 MG, QD
     Route: 048
     Dates: start: 20241017
  2. LAMPRENE [Suspect]
     Active Substance: CLOFAZIMINE
     Dosage: 100 MG, QD
     Route: 048
     Dates: start: 20241022
  3. LAMPRENE [Suspect]
     Active Substance: CLOFAZIMINE
     Dosage: 100 MG, QD
     Route: 048
     Dates: start: 20241102
  4. ACETAMINOPHEN [Concomitant]
     Active Substance: ACETAMINOPHEN
     Indication: Back pain
     Route: 048
     Dates: start: 20241022
  5. ACETAMINOPHEN [Concomitant]
     Active Substance: ACETAMINOPHEN
     Route: 048
     Dates: end: 20241023
  6. ACETAMINOPHEN [Concomitant]
     Active Substance: ACETAMINOPHEN
     Route: 048
     Dates: start: 20241104, end: 20241104
  7. ACETAMINOPHEN [Concomitant]
     Active Substance: ACETAMINOPHEN
     Route: 048
     Dates: start: 20241210, end: 20241214
  8. ACETAMINOPHEN [Concomitant]
     Active Substance: ACETAMINOPHEN
     Dosage: 1000 MG, Q8H
     Route: 048
     Dates: start: 20241229, end: 20250103
  9. BUMEX [Concomitant]
     Active Substance: BUMETANIDE
     Indication: Oedema peripheral
     Dosage: 1 MG, BID
     Route: 048
     Dates: start: 20240918
  10. BUMEX [Concomitant]
     Active Substance: BUMETANIDE
     Indication: Cardiac failure
     Route: 048
     Dates: start: 20240929, end: 20240929
  11. BUMEX [Concomitant]
     Active Substance: BUMETANIDE
     Indication: Ejection fraction decreased
     Route: 048
     Dates: start: 20241014, end: 20241014
  12. BUMEX [Concomitant]
     Active Substance: BUMETANIDE
     Indication: Hypervolaemia
     Dosage: 1 MG, QD
     Route: 048
  13. BUMEX [Concomitant]
     Active Substance: BUMETANIDE
     Dosage: 2 MG, QD
     Route: 048
  14. BUMEX [Concomitant]
     Active Substance: BUMETANIDE
     Route: 042
     Dates: start: 20241211, end: 20241211
  15. BUMEX [Concomitant]
     Active Substance: BUMETANIDE
     Route: 042
     Dates: start: 20241215, end: 20241217
  16. GABAPENTIN [Concomitant]
     Active Substance: GABAPENTIN
     Indication: Back pain
     Dosage: 100 MG, BID
     Route: 048
     Dates: start: 20240917, end: 20241213
  17. GABAPENTIN [Concomitant]
     Active Substance: GABAPENTIN
     Dosage: 300 MG, BID
     Route: 048
     Dates: start: 20241227, end: 20241229
  18. GABAPENTIN [Concomitant]
     Active Substance: GABAPENTIN
     Dosage: 300 MG, Q8H
     Route: 048
     Dates: start: 20241229, end: 20241230
  19. GABAPENTIN [Concomitant]
     Active Substance: GABAPENTIN
     Dosage: 200 MG, Q8H
     Route: 048
     Dates: start: 20241231
  20. VALIUM [Concomitant]
     Active Substance: DIAZEPAM
     Indication: Anxiety
     Route: 048
     Dates: start: 20240912
  21. AMIKACIN [Concomitant]
     Active Substance: AMIKACIN
     Indication: Mycobacterium abscessus infection
     Route: 042
     Dates: start: 20240823, end: 20241016
  22. COLCHICINE [Concomitant]
     Active Substance: COLCHICINE
     Indication: Gout
     Route: 048
     Dates: start: 20240803
  23. PHENERGAN [Concomitant]
     Active Substance: PROMETHAZINE HYDROCHLORIDE
     Indication: Nausea
     Route: 048
     Dates: start: 20240721
  24. CEFOXITIN [Concomitant]
     Active Substance: CEFOXITIN SODIUM
     Indication: Mycobacterium abscessus infection
     Dosage: 2 G, Q12H
     Route: 042
     Dates: start: 20240720, end: 20241023
  25. TACROLIMUS [Concomitant]
     Active Substance: TACROLIMUS
     Indication: Lung transplant
     Dosage: 1 MG, BID
     Route: 048
     Dates: start: 20240712, end: 20241022
  26. TACROLIMUS [Concomitant]
     Active Substance: TACROLIMUS
     Dosage: 2 MG, BID
     Route: 048
     Dates: start: 20241022, end: 20241106
  27. TACROLIMUS [Concomitant]
     Active Substance: TACROLIMUS
     Dosage: 1 MG, BID
     Route: 048
     Dates: start: 20241107, end: 20241110
  28. TACROLIMUS [Concomitant]
     Active Substance: TACROLIMUS
     Route: 048
     Dates: start: 20241110, end: 20241110
  29. TACROLIMUS [Concomitant]
     Active Substance: TACROLIMUS
     Dosage: 1.5 MG, QD
     Route: 048
     Dates: start: 20241111
  30. TACROLIMUS [Concomitant]
     Active Substance: TACROLIMUS
     Dosage: 1 MG, QD
     Route: 048
     Dates: start: 20241111, end: 20241111
  31. TACROLIMUS [Concomitant]
     Active Substance: TACROLIMUS
     Dosage: 2 MG, QD
     Route: 048
     Dates: start: 20241112
  32. TACROLIMUS [Concomitant]
     Active Substance: TACROLIMUS
     Route: 048
     Dates: start: 20241112, end: 20241112
  33. TACROLIMUS [Concomitant]
     Active Substance: TACROLIMUS
     Route: 048
     Dates: start: 20241213, end: 20241213
  34. TACROLIMUS [Concomitant]
     Active Substance: TACROLIMUS
     Route: 060
     Dates: start: 20241214, end: 20241214
  35. TACROLIMUS [Concomitant]
     Active Substance: TACROLIMUS
     Dosage: 1.5 MG, Q24H
     Route: 048
     Dates: start: 20241214, end: 20241214
  36. TACROLIMUS [Concomitant]
     Active Substance: TACROLIMUS
     Dosage: 1.5 MG, Q12H
     Route: 060
     Dates: start: 20241215, end: 20241217
  37. TACROLIMUS [Concomitant]
     Active Substance: TACROLIMUS
     Dosage: 2 MG, Q12H
     Route: 048
     Dates: start: 20241217, end: 20241217
  38. TACROLIMUS [Concomitant]
     Active Substance: TACROLIMUS
     Dosage: 2 MG, Q12H (ORAL SUSPENSION)
     Route: 048
     Dates: start: 20241219, end: 20241221
  39. TACROLIMUS [Concomitant]
     Active Substance: TACROLIMUS
     Dosage: 1.5 MG, Q12H (ORAL SUSPENSION)
     Route: 048
     Dates: start: 20241221, end: 20241224
  40. TACROLIMUS [Concomitant]
     Active Substance: TACROLIMUS
     Dosage: 1.5 MG, Q12H
     Route: 048
     Dates: start: 20241224, end: 20241225
  41. TACROLIMUS [Concomitant]
     Active Substance: TACROLIMUS
     Route: 048
     Dates: start: 20241225, end: 20241225
  42. TACROLIMUS [Concomitant]
     Active Substance: TACROLIMUS
     Dosage: 2 MG, Q12H
     Route: 048
     Dates: start: 20241225, end: 20241227
  43. TACROLIMUS [Concomitant]
     Active Substance: TACROLIMUS
     Route: 048
     Dates: start: 20241227, end: 20241227
  44. TACROLIMUS [Concomitant]
     Active Substance: TACROLIMUS
     Dosage: 2 MG, QD
     Route: 048
     Dates: start: 20241227, end: 20241228
  45. TACROLIMUS [Concomitant]
     Active Substance: TACROLIMUS
     Dosage: 2.5 MG, QD
     Route: 048
     Dates: start: 20241228, end: 20241230
  46. TACROLIMUS [Concomitant]
     Active Substance: TACROLIMUS
     Dosage: 2 MG, Q12H
     Route: 048
     Dates: start: 20241230, end: 20241231
  47. TACROLIMUS [Concomitant]
     Active Substance: TACROLIMUS
     Dosage: 2.5 MG, Q12H
     Route: 048
     Dates: start: 20241231, end: 20250103
  48. ROSUVASTATIN [Concomitant]
     Active Substance: ROSUVASTATIN
     Indication: Hyperlipidaemia
     Dosage: 10 MG, QD
     Route: 048
     Dates: start: 20240709
  49. SACUBITRIL\VALSARTAN [Concomitant]
     Active Substance: SACUBITRIL\VALSARTAN
     Indication: Hypertension
     Dosage: 1 DOSAGE FORM, BID (TABLET)
     Route: 048
     Dates: start: 20240709, end: 20241023
  50. ZOFRAN [Concomitant]
     Active Substance: ONDANSETRON HYDROCHLORIDE
     Indication: Nausea
     Route: 048
     Dates: start: 20240702
  51. ZOFRAN [Concomitant]
     Active Substance: ONDANSETRON HYDROCHLORIDE
     Route: 048
     Dates: start: 20241022
  52. ZOFRAN [Concomitant]
     Active Substance: ONDANSETRON HYDROCHLORIDE
     Route: 042
     Dates: start: 20241103, end: 20241112
  53. ZOFRAN [Concomitant]
     Active Substance: ONDANSETRON HYDROCHLORIDE
     Route: 042
     Dates: start: 20241230
  54. SODIUM CHLORIDE [Concomitant]
     Active Substance: SODIUM CHLORIDE
     Indication: Lung transplant
     Dosage: 4 ML, BID (NEBULIZED) 3 PERCENT
     Route: 050
     Dates: start: 20240702
  55. VANCOMYCIN [Concomitant]
     Active Substance: VANCOMYCIN
     Indication: Clostridium difficile infection
     Dosage: 125 MG, QD
     Route: 048
     Dates: start: 20240702, end: 20241002
  56. VANCOMYCIN [Concomitant]
     Active Substance: VANCOMYCIN
     Dosage: 125 MG, BID
     Route: 048
     Dates: start: 20241002
  57. HYDRALAZINE [Concomitant]
     Active Substance: HYDRALAZINE HYDROCHLORIDE
     Indication: Hypertension
     Dosage: 100 MG, Q8H
     Route: 048
     Dates: start: 20240702, end: 20241106
  58. HYDRALAZINE [Concomitant]
     Active Substance: HYDRALAZINE HYDROCHLORIDE
     Dosage: 50 MG, Q8H
     Route: 048
     Dates: start: 20241106, end: 20241107
  59. HYDRALAZINE [Concomitant]
     Active Substance: HYDRALAZINE HYDROCHLORIDE
     Dosage: 50 MG, Q8H
     Route: 048
  60. HYDRALAZINE [Concomitant]
     Active Substance: HYDRALAZINE HYDROCHLORIDE
     Dosage: 75 MG, Q8H
     Route: 048
     Dates: start: 20241107, end: 20241111
  61. HYDRALAZINE [Concomitant]
     Active Substance: HYDRALAZINE HYDROCHLORIDE
     Dosage: 100 MG, Q8H
     Route: 048
     Dates: start: 20241122
  62. HYDRALAZINE [Concomitant]
     Active Substance: HYDRALAZINE HYDROCHLORIDE
     Dosage: 100 MG, Q8H
     Route: 048
     Dates: start: 20241211, end: 20241212
  63. HYDRALAZINE [Concomitant]
     Active Substance: HYDRALAZINE HYDROCHLORIDE
     Route: 042
     Dates: start: 20241213, end: 20241219
  64. HYDRALAZINE [Concomitant]
     Active Substance: HYDRALAZINE HYDROCHLORIDE
     Dosage: 10 MG, Q6H
     Route: 042
     Dates: start: 20241219, end: 20241219
  65. HYDRALAZINE [Concomitant]
     Active Substance: HYDRALAZINE HYDROCHLORIDE
     Dosage: 75 MG, Q8H
     Route: 048
     Dates: start: 20241214, end: 20241214
  66. HYDRALAZINE [Concomitant]
     Active Substance: HYDRALAZINE HYDROCHLORIDE
     Dosage: 100 MG, Q8H
     Route: 048
     Dates: start: 20241214, end: 20241215
  67. HYDRALAZINE [Concomitant]
     Active Substance: HYDRALAZINE HYDROCHLORIDE
     Dosage: 50 MG, Q8H
     Route: 048
     Dates: start: 20241213, end: 20241218
  68. HYDRALAZINE [Concomitant]
     Active Substance: HYDRALAZINE HYDROCHLORIDE
     Dosage: 100 MG, Q8H
     Route: 048
     Dates: start: 20241218, end: 20241219
  69. HYDRALAZINE [Concomitant]
     Active Substance: HYDRALAZINE HYDROCHLORIDE
     Dosage: 25 MG, Q8H
     Route: 048
     Dates: start: 20241219, end: 20241220
  70. HYDRALAZINE [Concomitant]
     Active Substance: HYDRALAZINE HYDROCHLORIDE
     Dosage: 50 MG, Q8H
     Route: 048
     Dates: start: 20241220, end: 20241222
  71. HYDRALAZINE [Concomitant]
     Active Substance: HYDRALAZINE HYDROCHLORIDE
     Dosage: 100 MG, Q8H
     Route: 048
     Dates: start: 20241222, end: 20241228
  72. HYDRALAZINE [Concomitant]
     Active Substance: HYDRALAZINE HYDROCHLORIDE
     Dosage: 50 MG, Q8H
     Route: 048
     Dates: start: 20241228, end: 20250105
  73. NIFEDIPINE [Concomitant]
     Active Substance: NIFEDIPINE
     Indication: Hypertension
     Dosage: 60 MG, Q12H
     Route: 048
     Dates: start: 20240702, end: 20241025
  74. NIFEDIPINE [Concomitant]
     Active Substance: NIFEDIPINE
     Route: 048
     Dates: start: 20241025, end: 20241025
  75. NIFEDIPINE [Concomitant]
     Active Substance: NIFEDIPINE
     Dosage: 90 MG, BID
     Route: 048
     Dates: start: 20241025
  76. NIFEDIPINE [Concomitant]
     Active Substance: NIFEDIPINE
     Dosage: 30 MG, BID
     Route: 048
     Dates: start: 20241218, end: 20241219
  77. NIFEDIPINE [Concomitant]
     Active Substance: NIFEDIPINE
     Dosage: 90 MG, BID
     Route: 048
     Dates: start: 20241223, end: 20241223
  78. NALOXONE [Concomitant]
     Active Substance: NALOXONE
     Indication: Prophylaxis
     Route: 045
     Dates: start: 20240702
  79. OMADACYCLINE TOSYLATE [Concomitant]
     Active Substance: OMADACYCLINE TOSYLATE
     Indication: Mycobacterium abscessus infection
     Dosage: 300 MG, QD
     Route: 048
     Dates: start: 20240629
  80. ATOVAQUONE [Concomitant]
     Active Substance: ATOVAQUONE
     Indication: Lung transplant
     Dosage: 10 ML, QD
     Route: 048
     Dates: start: 20241011
  81. COREG [Concomitant]
     Active Substance: CARVEDILOL
     Indication: Hypertension
     Dosage: 25 MG, BID
     Route: 048
     Dates: start: 20240606, end: 20241211
  82. ALBUTEROL [Concomitant]
     Active Substance: ALBUTEROL
     Indication: Lung transplant
     Route: 050
     Dates: start: 20240606
  83. FERROUS SULFATE [Concomitant]
     Active Substance: FERROUS SULFATE
     Indication: Anaemia macrocytic
     Dosage: 1 DOSAGE FORM (TABLET), QD
     Route: 048
     Dates: start: 20240413
  84. SUBOXONE [Concomitant]
     Active Substance: BUPRENORPHINE HYDROCHLORIDE\NALOXONE HYDROCHLORIDE
     Indication: Back pain
     Route: 060
     Dates: start: 20240401, end: 20241106
  85. SUBOXONE [Concomitant]
     Active Substance: BUPRENORPHINE HYDROCHLORIDE\NALOXONE HYDROCHLORIDE
     Dosage: 8 MG, BID
     Route: 060
     Dates: start: 20241106
  86. LETERMOVIR [Concomitant]
     Active Substance: LETERMOVIR
     Indication: Prophylaxis
     Dosage: 480 MG, QD
     Route: 048
     Dates: start: 20240401
  87. PREDNISONE [Concomitant]
     Active Substance: PREDNISONE
     Indication: Lung transplant
     Dosage: 5 MG, QD
     Route: 048
     Dates: start: 20240401, end: 20241028
  88. PREDNISONE [Concomitant]
     Active Substance: PREDNISONE
     Dosage: 40 MG, QD
     Route: 048
     Dates: start: 20241028, end: 20241030
  89. PREDNISONE [Concomitant]
     Active Substance: PREDNISONE
     Dosage: 30 MG, QD
     Route: 048
     Dates: start: 20241031, end: 20241102
  90. PREDNISONE [Concomitant]
     Active Substance: PREDNISONE
     Dosage: 20 MG, QD
     Route: 048
     Dates: start: 20241103, end: 20241104
  91. PREDNISONE [Concomitant]
     Active Substance: PREDNISONE
     Dosage: 40 MG, QD
     Route: 048
     Dates: start: 20241109, end: 20241113
  92. PREDNISONE [Concomitant]
     Active Substance: PREDNISONE
     Dosage: 10 MG, QD
     Route: 048
     Dates: start: 20241124
  93. PREDNISONE [Concomitant]
     Active Substance: PREDNISONE
     Dosage: 5 MG, QD
     Route: 048
     Dates: start: 20241218, end: 20241219
  94. PREDNISONE [Concomitant]
     Active Substance: PREDNISONE
     Dosage: 5 MG, QD
     Route: 048
     Dates: start: 20241223, end: 20241230
  95. Vitamin and mineral complex [Concomitant]
     Indication: Prophylaxis
     Dosage: 1 DOSAGE FORM (TABLET), QD
     Route: 048
     Dates: start: 20231223
  96. METHOCARBAMOL [Concomitant]
     Active Substance: METHOCARBAMOL
     Indication: Back pain
     Route: 048
     Dates: start: 20231223
  97. METHOCARBAMOL [Concomitant]
     Active Substance: METHOCARBAMOL
     Dosage: 750 MG, Q6H
     Route: 048
     Dates: start: 20241227, end: 20241230
  98. METHOCARBAMOL [Concomitant]
     Active Substance: METHOCARBAMOL
     Dosage: 1000 MG, Q6H
     Route: 048
     Dates: start: 20241230
  99. MIRTAZAPINE [Concomitant]
     Active Substance: MIRTAZAPINE
     Indication: Decreased appetite
     Dosage: 15 MG, QD
     Route: 048
     Dates: start: 20231222, end: 20241023
  100. MIRTAZAPINE [Concomitant]
     Active Substance: MIRTAZAPINE
     Dosage: 7.5 MG, QD
     Route: 048
     Dates: start: 20241023, end: 20241210
  101. MIRTAZAPINE [Concomitant]
     Active Substance: MIRTAZAPINE
     Dosage: 7.5 MG, QD
     Route: 048
     Dates: start: 20241217, end: 20241218
  102. OMEPRAZOLE [Concomitant]
     Active Substance: OMEPRAZOLE
     Indication: Gastrooesophageal reflux disease
     Dosage: 40 MG, QD
     Route: 048
     Dates: start: 20231020, end: 20241022
  103. OMEPRAZOLE [Concomitant]
     Active Substance: OMEPRAZOLE
     Dosage: 40 MG, QD
     Route: 048
     Dates: start: 20241101, end: 20241104
  104. OMEPRAZOLE [Concomitant]
     Active Substance: OMEPRAZOLE
     Dosage: 40 MG, QD
     Route: 048
     Dates: start: 20241113, end: 20241210
  105. CALCIUM CITRATE\CHOLECALCIFEROL [Concomitant]
     Active Substance: CALCIUM CITRATE\CHOLECALCIFEROL
     Indication: Prophylaxis
     Dosage: 1 DOSAGE FORM (TABLET), BID
     Route: 048
     Dates: start: 20210730
  106. CALCIUM CITRATE\CHOLECALCIFEROL [Concomitant]
     Active Substance: CALCIUM CITRATE\CHOLECALCIFEROL
     Dosage: 1 DOSAGE FORM (TABLET), BID
     Route: 048
     Dates: start: 20241210, end: 20241218
  107. ASPIRIN [Concomitant]
     Active Substance: ASPIRIN
     Indication: Prophylaxis
     Dosage: 81 MG, QD
     Route: 048
     Dates: start: 20241023
  108. TETRAHYDROZOLINE HYDROCHLORIDE [Concomitant]
     Active Substance: TETRAHYDROZOLINE HYDROCHLORIDE
     Indication: Dry eye
     Route: 047
  109. FUROSEMIDE [Concomitant]
     Active Substance: FUROSEMIDE
     Indication: Oedema peripheral
     Dosage: 40 MG, QD
     Route: 048
     Dates: start: 20241015, end: 20241018
  110. FUROSEMIDE [Concomitant]
     Active Substance: FUROSEMIDE
     Indication: Heart failure with preserved ejection fraction
     Route: 042
     Dates: start: 20241023, end: 20241023
  111. FUROSEMIDE [Concomitant]
     Active Substance: FUROSEMIDE
     Route: 042
     Dates: start: 20241023, end: 20241025
  112. FUROSEMIDE [Concomitant]
     Active Substance: FUROSEMIDE
     Route: 042
     Dates: start: 20241225, end: 20241225
  113. FUROSEMIDE [Concomitant]
     Active Substance: FUROSEMIDE
     Route: 042
     Dates: start: 20241228, end: 20241228
  114. FUROSEMIDE [Concomitant]
     Active Substance: FUROSEMIDE
     Route: 042
     Dates: start: 20241229, end: 20241229
  115. TORSEMIDE [Concomitant]
     Active Substance: TORSEMIDE
     Indication: Oedema peripheral
     Dosage: 20 MG, QD
     Route: 048
     Dates: start: 20241019, end: 20241023
  116. TORSEMIDE [Concomitant]
     Active Substance: TORSEMIDE
     Indication: Heart failure with preserved ejection fraction
     Dosage: 40 MG, QD
     Route: 048
     Dates: start: 20241026, end: 20241103
  117. HEPARIN [Concomitant]
     Active Substance: HEPARIN SODIUM
     Indication: Prophylaxis
     Dosage: 5000 UNITS, Q12H
     Route: 058
     Dates: start: 20241022, end: 20241031
  118. HEPARIN [Concomitant]
     Active Substance: HEPARIN SODIUM
     Dosage: 5000 UNITS, Q12H
     Route: 058
     Dates: start: 20241210
  119. PANTOPRAZOLE [Concomitant]
     Active Substance: PANTOPRAZOLE
     Indication: Gastrooesophageal reflux disease
     Dosage: 40 MG, QD
     Route: 048
     Dates: start: 20241023, end: 20241031
  120. PANTOPRAZOLE [Concomitant]
     Active Substance: PANTOPRAZOLE
     Dosage: 40 MG, QD
     Route: 048
     Dates: start: 20241104, end: 20241112
  121. PANTOPRAZOLE [Concomitant]
     Active Substance: PANTOPRAZOLE
     Dosage: 40 MG, QD
     Route: 048
     Dates: start: 20241210, end: 20241213
  122. PANTOPRAZOLE [Concomitant]
     Active Substance: PANTOPRAZOLE
     Dosage: 40 MG, QD
     Route: 048
     Dates: start: 20241213, end: 20241217
  123. PANTOPRAZOLE [Concomitant]
     Active Substance: PANTOPRAZOLE
     Dosage: 40 MG, QD
     Route: 048
     Dates: start: 20241218, end: 20241219
  124. PANTOPRAZOLE [Concomitant]
     Active Substance: PANTOPRAZOLE
     Dosage: 40 MG, QD (SUSPENSION)
     Route: 048
     Dates: start: 20241219, end: 20241222
  125. PANTOPRAZOLE [Concomitant]
     Active Substance: PANTOPRAZOLE
     Dosage: 40 MG, QD
     Route: 048
     Dates: start: 20241223, end: 20241230
  126. PANTOPRAZOLE [Concomitant]
     Active Substance: PANTOPRAZOLE
     Dosage: 40 MG, QD
     Route: 042
     Dates: start: 20241231, end: 20241231
  127. POTASSIUM CHLORIDE [Concomitant]
     Active Substance: POTASSIUM CHLORIDE
     Indication: Supplementation therapy
     Route: 048
     Dates: start: 20241024, end: 20241024
  128. POTASSIUM CHLORIDE [Concomitant]
     Active Substance: POTASSIUM CHLORIDE
     Route: 042
     Dates: start: 20241213, end: 20241214
  129. POTASSIUM CHLORIDE [Concomitant]
     Active Substance: POTASSIUM CHLORIDE
     Route: 048
     Dates: start: 20241216
  130. POTASSIUM CHLORIDE [Concomitant]
     Active Substance: POTASSIUM CHLORIDE
     Route: 048
     Dates: start: 20241217
  131. POTASSIUM CHLORIDE [Concomitant]
     Active Substance: POTASSIUM CHLORIDE
     Route: 048
     Dates: start: 20241217
  132. LIDOCAINE [Concomitant]
     Active Substance: LIDOCAINE
     Indication: Diagnostic procedure
     Route: 051
     Dates: start: 20241024, end: 20241024
  133. LIDOCAINE [Concomitant]
     Active Substance: LIDOCAINE
     Indication: Catheter placement
     Route: 042
     Dates: start: 20241024, end: 20241024
  134. LIDOCAINE [Concomitant]
     Active Substance: LIDOCAINE
     Indication: Debridement
     Route: 042
     Dates: start: 20241030, end: 20241030
  135. LIDOCAINE [Concomitant]
     Active Substance: LIDOCAINE
     Indication: Back pain
     Route: 058
     Dates: start: 20241031, end: 20241031
  136. LIDOCAINE [Concomitant]
     Active Substance: LIDOCAINE
     Route: 058
     Dates: start: 20241031, end: 20241031
  137. LIDOCAINE [Concomitant]
     Active Substance: LIDOCAINE
     Route: 051
     Dates: start: 20241111, end: 20241111
  138. LIDOCAINE [Concomitant]
     Active Substance: LIDOCAINE
     Route: 051
     Dates: start: 20241111, end: 20241111
  139. LIDOCAINE [Concomitant]
     Active Substance: LIDOCAINE
     Dosage: 2 DOSAGE FORM, QD
     Route: 062
     Dates: start: 20241211
  140. LIDOCAINE [Concomitant]
     Active Substance: LIDOCAINE
     Route: 045
     Dates: start: 20241218, end: 20241218
  141. GLYCOPYRROLATE [Concomitant]
     Active Substance: GLYCOPYRROLATE
     Indication: Diagnostic procedure
     Route: 042
     Dates: start: 20241024, end: 20241024
  142. GLYCOPYRROLATE [Concomitant]
     Active Substance: GLYCOPYRROLATE
     Indication: Debridement
     Route: 042
     Dates: start: 20241030, end: 20241030
  143. PHENYLEPHRINE [Concomitant]
     Active Substance: PHENYLEPHRINE
     Indication: Diagnostic procedure
     Route: 042
     Dates: start: 20241024, end: 20241024
  144. PHENYLEPHRINE [Concomitant]
     Active Substance: PHENYLEPHRINE
     Route: 042
     Dates: start: 20241111, end: 20241111
  145. PHENYLEPHRINE [Concomitant]
     Active Substance: PHENYLEPHRINE
     Route: 042
     Dates: start: 20241230, end: 20241230
  146. PROPOFOL [Concomitant]
     Active Substance: PROPOFOL
     Indication: Diagnostic procedure
     Route: 042
     Dates: start: 20241024, end: 20241024
  147. PROPOFOL [Concomitant]
     Active Substance: PROPOFOL
     Indication: Debridement
     Route: 042
     Dates: start: 20241024, end: 20241024
  148. PROPOFOL [Concomitant]
     Active Substance: PROPOFOL
     Route: 042
     Dates: start: 20241030, end: 20241030
  149. PROPOFOL [Concomitant]
     Active Substance: PROPOFOL
     Route: 042
     Dates: start: 20241111, end: 20241111
  150. PROPOFOL [Concomitant]
     Active Substance: PROPOFOL
     Route: 042
     Dates: start: 20241111, end: 20241111
  151. PROPOFOL [Concomitant]
     Active Substance: PROPOFOL
     Route: 042
     Dates: start: 20241111, end: 20241111
  152. PROPOFOL [Concomitant]
     Active Substance: PROPOFOL
     Route: 042
     Dates: start: 20241111, end: 20241111
  153. PROPOFOL [Concomitant]
     Active Substance: PROPOFOL
     Route: 042
     Dates: start: 20241230, end: 20241230
  154. PROPOFOL [Concomitant]
     Active Substance: PROPOFOL
     Route: 042
     Dates: start: 20241230, end: 20241230
  155. PROPOFOL [Concomitant]
     Active Substance: PROPOFOL
     Route: 065
  156. PROPOFOL [Concomitant]
     Active Substance: PROPOFOL
     Route: 065
  157. ROCURONIUM [Concomitant]
     Active Substance: ROCURONIUM BROMIDE
     Indication: Diagnostic procedure
     Route: 042
     Dates: start: 20241024, end: 20241024
  158. SUGAMMADEX SODIUM [Concomitant]
     Active Substance: SUGAMMADEX SODIUM
     Indication: Diagnostic procedure
     Route: 042
     Dates: start: 20241024, end: 20241024
  159. MIDAZOLAM [Concomitant]
     Active Substance: MIDAZOLAM
     Indication: Diagnostic procedure
     Route: 042
     Dates: start: 20241024, end: 20241026
  160. MIDAZOLAM [Concomitant]
     Active Substance: MIDAZOLAM
     Indication: Catheter placement
     Route: 042
     Dates: start: 20241031, end: 20241031
  161. FENTANYL [Concomitant]
     Active Substance: FENTANYL
     Indication: Catheter placement
     Route: 042
     Dates: start: 20241030, end: 20241030
  162. FENTANYL [Concomitant]
     Active Substance: FENTANYL
     Indication: Debridement
     Route: 042
     Dates: start: 20241031, end: 20241031
  163. FENTANYL [Concomitant]
     Active Substance: FENTANYL
     Indication: Diagnostic procedure
     Route: 042
     Dates: start: 20241031, end: 20241031
  164. FENTANYL [Concomitant]
     Active Substance: FENTANYL
     Route: 042
     Dates: start: 20241111, end: 20241111
  165. FENTANYL [Concomitant]
     Active Substance: FENTANYL
     Route: 042
     Dates: start: 20241111, end: 20241111
  166. SODIUM CHLORIDE [Concomitant]
     Active Substance: SODIUM CHLORIDE
     Indication: Debridement
     Route: 042
     Dates: start: 20241030, end: 20241030
  167. SODIUM CHLORIDE [Concomitant]
     Active Substance: SODIUM CHLORIDE
     Indication: Diagnostic procedure
     Route: 042
     Dates: start: 20241111, end: 20241111
  168. SODIUM CHLORIDE [Concomitant]
     Active Substance: SODIUM CHLORIDE
     Route: 042
     Dates: start: 20241230, end: 20241230
  169. DEXAMETHASONE [Concomitant]
     Active Substance: DEXAMETHASONE
     Indication: Debridement
     Route: 042
     Dates: start: 20241030, end: 20241030
  170. EPHEDRINE [Concomitant]
     Active Substance: EPHEDRINE
     Indication: Debridement
     Route: 042
     Dates: start: 20241030, end: 20241030
  171. BUPIVACAINE [Concomitant]
     Active Substance: BUPIVACAINE
     Indication: Debridement
     Route: 050
     Dates: start: 20241030, end: 20241030
  172. PHOSLO [Concomitant]
     Active Substance: CALCIUM ACETATE
     Indication: Supplementation therapy
     Dosage: 447 MG, TID
     Route: 048
     Dates: start: 20241107, end: 20241108
  173. POLYETHYLENE GLYCOL [Concomitant]
     Active Substance: POLYETHYLENE GLYCOL
     Indication: Prophylaxis
     Route: 048
     Dates: start: 20241106, end: 20241112
  174. POLYETHYLENE GLYCOL [Concomitant]
     Active Substance: POLYETHYLENE GLYCOL
     Route: 048
     Dates: start: 20241211, end: 20241214
  175. SENNA AND DOCUSATE SODIUM [Concomitant]
     Active Substance: DOCUSATE SODIUM\SENNOSIDES
     Indication: Prophylaxis
     Route: 048
     Dates: start: 20241106, end: 20241112
  176. SENNA AND DOCUSATE SODIUM [Concomitant]
     Active Substance: DOCUSATE SODIUM\SENNOSIDES
     Dosage: 2 DOSAGE FORM (TABLET),
     Route: 048
     Dates: start: 20241211, end: 20241214
  177. ZINC SULFATE [Concomitant]
     Active Substance: ZINC SULFATE
     Indication: Supplementation therapy
     Dosage: 220 MG, QD
     Route: 048
     Dates: start: 20241111, end: 20241210
  178. VITAMIN C [Concomitant]
     Active Substance: ASCORBIC ACID
     Indication: Supplementation therapy
     Dosage: 250 MG, QD
     Route: 048
     Dates: start: 20241111, end: 20241210
  179. PROCHLORPERAZINE [Concomitant]
     Active Substance: PROCHLORPERAZINE
     Indication: Nausea
     Route: 042
     Dates: start: 20241211
  180. THIAMINE [Concomitant]
     Active Substance: THIAMINE
     Indication: Supplementation therapy
     Dosage: 100 MG, QD
     Route: 048
     Dates: start: 20241211
  181. INSULIN NOS [Concomitant]
     Active Substance: INSULIN NOS
     Indication: Type 2 diabetes mellitus
     Route: 042
     Dates: start: 20241210, end: 20241211
  182. INSULIN NOS [Concomitant]
     Active Substance: INSULIN NOS
     Route: 042
     Dates: start: 20241211, end: 20241211
  183. INSULIN NOS [Concomitant]
     Active Substance: INSULIN NOS
     Route: 042
     Dates: start: 20241211, end: 20241211
  184. INSULIN NOS [Concomitant]
     Active Substance: INSULIN NOS
     Route: 042
     Dates: start: 20241211, end: 20241211
  185. INSULIN NOS [Concomitant]
     Active Substance: INSULIN NOS
     Route: 058
     Dates: start: 20241216
  186. INSULIN NOS [Concomitant]
     Active Substance: INSULIN NOS
     Route: 058
     Dates: start: 20241216
  187. INSULIN NOS [Concomitant]
     Active Substance: INSULIN NOS
     Route: 058
     Dates: start: 20241216
  188. INSULIN NOS [Concomitant]
     Active Substance: INSULIN NOS
     Route: 042
     Dates: start: 20241224
  189. SODIUM BICARBONATE [Concomitant]
     Active Substance: SODIUM BICARBONATE
     Indication: Product used for unknown indication
     Route: 042
     Dates: start: 20241211, end: 20241211
  190. MELATONIN [Concomitant]
     Active Substance: MELATONIN
     Indication: Product used for unknown indication
     Route: 048
     Dates: start: 20241210, end: 20241218
  191. MELATONIN [Concomitant]
     Active Substance: MELATONIN
     Dosage: 9 MG, QD
     Route: 048
     Dates: start: 20241218
  192. BARIUM SULFATE [Concomitant]
     Active Substance: BARIUM SULFATE
     Indication: Product used for unknown indication
     Route: 048
     Dates: start: 20241216, end: 20241216
  193. BARIUM SULFATE [Concomitant]
     Active Substance: BARIUM SULFATE
     Route: 048
     Dates: start: 20241216, end: 20241216
  194. BARIUM SULFATE [Concomitant]
     Active Substance: BARIUM SULFATE
     Route: 048
     Dates: start: 20241216, end: 20241216
  195. DEXTROSE [Concomitant]
     Active Substance: DEXTROSE MONOHYDRATE
     Indication: Product used for unknown indication
     Route: 042
     Dates: start: 20241210, end: 20241211
  196. AMLODIPINE [Concomitant]
     Active Substance: AMLODIPINE BESYLATE
     Indication: Hypertension
     Dosage: 10 MG, QD
     Route: 048
     Dates: start: 20241220, end: 20241222
  197. CALCIUM GLUCONATE [Concomitant]
     Active Substance: CALCIUM GLUCONATE
     Indication: Product used for unknown indication
     Route: 042
     Dates: start: 20241224
  198. OXYCODONE [Concomitant]
     Active Substance: OXYCODONE
     Indication: Back pain
     Route: 048
     Dates: start: 20241215, end: 20241226
  199. OXYCODONE [Concomitant]
     Active Substance: OXYCODONE
     Route: 048
     Dates: start: 20241226, end: 20241231
  200. LABETALOL [Concomitant]
     Active Substance: LABETALOL
     Indication: Hypertension
     Route: 042
     Dates: start: 20241220, end: 20241220
  201. INSULIN LISPRO [Concomitant]
     Active Substance: INSULIN LISPRO
     Indication: Diabetes mellitus
     Route: 058
     Dates: start: 20241215, end: 20241215
  202. NIFEDIPINE [Concomitant]
     Active Substance: NIFEDIPINE
     Indication: Hypertension
     Dosage: 30 MG, Q12H
     Route: 048
     Dates: start: 20241218, end: 20241219
  203. NIFEDIPINE [Concomitant]
     Active Substance: NIFEDIPINE
     Dosage: 90 MG, Q12H
     Route: 048
     Dates: start: 20241223, end: 20241223
  204. BENZOCAINE\MENTHOL [Concomitant]
     Active Substance: BENZOCAINE\MENTHOL
     Indication: Product used for unknown indication
     Route: 002
     Dates: start: 20241214, end: 20241215
  205. BENZOCAINE\MENTHOL [Concomitant]
     Active Substance: BENZOCAINE\MENTHOL
     Route: 048
     Dates: start: 20241223
  206. DILAUDID [Concomitant]
     Active Substance: HYDROMORPHONE HYDROCHLORIDE
     Indication: Back pain
     Route: 042
     Dates: start: 20241231
  207. DILAUDID [Concomitant]
     Active Substance: HYDROMORPHONE HYDROCHLORIDE
     Route: 042
     Dates: start: 20241231, end: 20241231
  208. IOHEXOL [Concomitant]
     Active Substance: IOHEXOL
     Indication: Product used for unknown indication
     Route: 042
     Dates: start: 20241230, end: 20241230

REACTIONS (33)
  - Acute respiratory failure [Recovered/Resolved]
  - Pseudomonal sepsis [Recovering/Resolving]
  - Wound infection pseudomonas [Not Recovered/Not Resolved]
  - Fluid retention [Recovering/Resolving]
  - Dyspnoea [Not Recovered/Not Resolved]
  - Respiratory failure [Recovered/Resolved]
  - Hypertensive crisis [Recovered/Resolved]
  - Mental impairment [Recovered/Resolved with Sequelae]
  - Cardiac failure acute [Not Recovered/Not Resolved]
  - Electrocardiogram QT prolonged [Recovered/Resolved]
  - Septic shock [Unknown]
  - Pneumonia [Unknown]
  - Bronchostenosis [Recovered/Resolved]
  - Urinary retention [Recovering/Resolving]
  - Pneumonia aspiration [Recovered/Resolved]
  - Acute kidney injury [Recovering/Resolving]
  - Heart failure with reduced ejection fraction [Recovering/Resolving]
  - Pyrexia [Unknown]
  - Hyperglycaemia [Recovering/Resolving]
  - Rash [Recovering/Resolving]
  - Vascular access malfunction [Recovered/Resolved]
  - Hypotension [Unknown]
  - Haemoptysis [Recovered/Resolved]
  - Headache [Recovered/Resolved]
  - Dysphagia [Not Recovered/Not Resolved]
  - Abdominal pain [Recovered/Resolved]
  - Skin abrasion [Recovering/Resolving]
  - Malnutrition [Not Recovered/Not Resolved]
  - Bladder cyst [Not Recovered/Not Resolved]
  - Bronchial secretion retention [Unknown]
  - Bronchial anastomosis complication [Recovering/Resolving]
  - Skin laceration [Recovered/Resolved]
  - Oropharyngeal pain [Recovered/Resolved]

NARRATIVE: CASE EVENT DATE: 20241022
